FAERS Safety Report 10285074 (Version 1)
Quarter: 2014Q3

REPORT INFORMATION
  Report Type: Spontaneous
  Country: JP (occurrence: JP)
  Receive Date: 20140708
  Receipt Date: 20140708
  Transmission Date: 20150326
  Serious: Yes (Other)
  Sender: FDA-Public Use
  Company Number: JP-009507513-1407JPN002907

PATIENT
  Age: 62 Year
  Sex: Male

DRUGS (2)
  1. URSO [Concomitant]
     Active Substance: URSODIOL
     Dosage: DAILY DOSE UNKNOWN
     Route: 065
  2. NU-LOTAN [Suspect]
     Active Substance: LOSARTAN POTASSIUM
     Dosage: DAILY DOSE UNKNOWN
     Route: 048

REACTIONS (2)
  - Paralysis [Unknown]
  - Facial spasm [Unknown]
